FAERS Safety Report 8051937-6 (Version None)
Quarter: 2012Q1

REPORT INFORMATION
  Report Type: 
  Country: None (occurrence: None)
  Receive Date: 20120111
  Receipt Date: 20111229
  Transmission Date: 20120608
  Serious: Yes (Hospitalization)
  Sender: FDA-Public Use
  Company Number: 201106050

PATIENT
  Age: 82 Year
  Sex: Female
  Weight: 55 kg

DRUGS (4)
  1. THROMB ASA (ACETYSALICYLIC ACID) [Concomitant]
  2. ACTONEOL (RISEDRONATE SODIUM) [Concomitant]
  3. XIAFLEX [Suspect]
     Indication: DUPUYTREN'S CONTRACTURE
     Dosage: 0.58 MG, 1 IN 1 D, INTRALESIONAL
     Route: 026
     Dates: start: 20110620
  4. CALCIUM CARBONATE [Concomitant]

REACTIONS (3)
  - HYPERTENSIVE CRISIS [None]
  - SOMNOLENCE [None]
  - DIZZINESS [None]
